FAERS Safety Report 10985006 (Version 2)
Quarter: 2015Q2

REPORT INFORMATION
  Report Type: Report from Study
  Country: PL (occurrence: PL)
  Receive Date: 20150403
  Receipt Date: 20150525
  Transmission Date: 20150821
  Serious: Yes (Life-Threatening, Hospitalization, Other)
  Sender: FDA-Public Use
  Company Number: PL-ASTRAZENECA-2015SE31487

PATIENT
  Age: 23396 Day
  Sex: Female

DRUGS (9)
  1. ASPIRIN. [Suspect]
     Active Substance: ASPIRIN
     Indication: ACUTE CORONARY SYNDROME
     Dosage: MAINTENANCE DOSE (NON-AZ PRODUCT)
     Route: 048
     Dates: start: 20140715
  2. TORASEMIDUM [Concomitant]
  3. TICAGRELOR [Suspect]
     Active Substance: TICAGRELOR
     Indication: ACUTE CORONARY SYNDROME
     Route: 048
     Dates: start: 20140819, end: 20150126
  4. LEVOTHYROXINE [Concomitant]
     Active Substance: LEVOTHYROXINE
  5. VALSARTANUM [Concomitant]
  6. PANTOPRAZOLE [Concomitant]
     Active Substance: PANTOPRAZOLE SODIUM
     Dates: start: 20140715
  7. ROSUVASTATINUM [Concomitant]
  8. CLOPIDOGRELUM [Concomitant]
     Dates: start: 20150126
  9. DOXEPIN [Concomitant]
     Active Substance: DOXEPIN

REACTIONS (1)
  - Acute kidney injury [Recovered/Resolved with Sequelae]

NARRATIVE: CASE EVENT DATE: 20150121
